FAERS Safety Report 11065259 (Version 4)
Quarter: 2016Q3

REPORT INFORMATION
  Report Type: Spontaneous
  Country: US (occurrence: US)
  Receive Date: 20150425
  Receipt Date: 20160721
  Transmission Date: 20161109
  Serious: Yes (Other)
  Sender: FDA-Public Use
  Company Number: US-JNJFOC-20140904680

PATIENT
  Age: 45 Year
  Sex: Female

DRUGS (2)
  1. STELARA [Suspect]
     Active Substance: USTEKINUMAB
     Indication: PSORIASIS
     Dosage: 1ST DOSE
     Route: 058
     Dates: start: 20140210
  2. STELARA [Suspect]
     Active Substance: USTEKINUMAB
     Indication: PSORIASIS
     Dosage: 2ND DOSE
     Route: 058
     Dates: start: 20140314

REACTIONS (5)
  - Inappropriate schedule of drug administration [Unknown]
  - Dermatitis exfoliative [Unknown]
  - Staphylococcal infection [Recovered/Resolved]
  - Psoriasis [Recovered/Resolved]
  - Off label use [Unknown]

NARRATIVE: CASE EVENT DATE: 20140314
